FAERS Safety Report 23822490 (Version 1)
Quarter: 2024Q2

REPORT INFORMATION
  Report Type: Spontaneous
  Country: US (occurrence: US)
  Receive Date: 20240506
  Receipt Date: 20240506
  Transmission Date: 20240715
  Serious: No
  Sender: FDA-Public Use
  Company Number: US-SCPHARMACEUTICALS-2024-SCPH-US000139

PATIENT
  Sex: Male

DRUGS (10)
  1. FUROSCIX [Suspect]
     Active Substance: FUROSEMIDE
     Indication: Hypervolaemia
     Dosage: 80 MG, DAILY
     Route: 058
     Dates: start: 202403
  2. ENTRESTO [Concomitant]
     Active Substance: SACUBITRIL\VALSARTAN
  3. ZOLOFT [Concomitant]
     Active Substance: SERTRALINE HYDROCHLORIDE
  4. AMLODIPINE [Concomitant]
     Active Substance: AMLODIPINE BESYLATE
  5. POTASSIUM CHLORIDE [Concomitant]
     Active Substance: POTASSIUM CHLORIDE
  6. PROTONIX [Concomitant]
     Active Substance: PANTOPRAZOLE SODIUM
  7. BUMEX [Concomitant]
     Active Substance: BUMETANIDE
  8. Zyrtex [Concomitant]
  9. RESTORIL [Concomitant]
     Active Substance: TEMAZEPAM
     Indication: Sleep disorder
  10. XANAX [Concomitant]
     Active Substance: ALPRAZOLAM
     Indication: Anxiety

REACTIONS (4)
  - Infusion site pain [Not Recovered/Not Resolved]
  - Erythema [Not Recovered/Not Resolved]
  - Infusion site irritation [Not Recovered/Not Resolved]
  - Dermatitis contact [Not Recovered/Not Resolved]
